FAERS Safety Report 5535779-9 (Version None)
Quarter: 2007Q4

REPORT INFORMATION
  Report Type: 
  Country: None (occurrence: None)
  Receive Date: 20071204
  Receipt Date: 20071204
  Transmission Date: 20080405
  Serious: Yes (Other)
  Sender: FDA-Public Use
  Company Number: None

PATIENT
  Sex: Female
  Weight: 58.9676 kg

DRUGS (2)
  1. CHANTIX [Suspect]
     Indication: SMOKING CESSATION THERAPY
     Dosage: .05MG   2X DAY  PO;  1 MG  2X A DAY  PO
     Route: 048
     Dates: start: 20071112, end: 20071119
  2. CHANTIX [Suspect]
     Indication: SMOKING CESSATION THERAPY
     Dosage: .05MG   2X DAY  PO;  1 MG  2X A DAY  PO
     Route: 048
     Dates: start: 20071119, end: 20071202

REACTIONS (8)
  - ABNORMAL BEHAVIOUR [None]
  - ANGER [None]
  - BACK PAIN [None]
  - CRYING [None]
  - DYSPNOEA [None]
  - FEELING ABNORMAL [None]
  - PAIN IN EXTREMITY [None]
  - POOR QUALITY SLEEP [None]
